FAERS Safety Report 10919402 (Version 2)
Quarter: 2015Q3

REPORT INFORMATION
  Report Type: Spontaneous
  Country: US (occurrence: US)
  Receive Date: 20150316
  Receipt Date: 20150921
  Transmission Date: 20151125
  Serious: No
  Sender: FDA-Public Use
  Company Number: US-GLAXOSMITHKLINE-US2015GSK015315

PATIENT
  Age: 87 Year
  Sex: Male
  Weight: 59.4 kg

DRUGS (2)
  1. VOTRIENT [Suspect]
     Active Substance: PAZOPANIB HYDROCHLORIDE
     Dosage: UNK
     Route: 048
     Dates: start: 2013, end: 20150904
  2. VOTRIENT [Suspect]
     Active Substance: PAZOPANIB HYDROCHLORIDE
     Indication: RENAL CANCER
     Dosage: UNK
     Dates: start: 20140728

REACTIONS (4)
  - Drug dose omission [Recovered/Resolved]
  - Tooth extraction [Unknown]
  - Therapy cessation [Unknown]
  - Impaired healing [Unknown]

NARRATIVE: CASE EVENT DATE: 201412
